FAERS Safety Report 5641067-2 (Version None)
Quarter: 2008Q1

REPORT INFORMATION
  Report Type: 
  Country: None (occurrence: None)
  Receive Date: 20080227
  Receipt Date: 20080219
  Transmission Date: 20080703
  Serious: Yes (Death, Hospitalization)
  Sender: FDA-Public Use
  Company Number: ES-AVENTIS-200810644GDDC

PATIENT
  Age: 73 Year
  Sex: Female

DRUGS (7)
  1. ARAVA [Suspect]
     Indication: RHEUMATOID ARTHRITIS
     Route: 048
     Dates: start: 20030606, end: 20030608
  2. ARAVA [Suspect]
     Route: 048
     Dates: start: 20030609, end: 20070205
  3. ACETAMINOPHEN [Concomitant]
     Dosage: DOSE: 1 G Q8-12HOURS
  4. ADOLONTA [Concomitant]
  5. CALCIUM SANDOZ FORTE D [Concomitant]
     Dosage: DOSE QUANTITY: 1
  6. MIACALCIN [Concomitant]
     Dosage: DOSE: 1 NEBULIZER
     Route: 055
  7. OMEPRAZOLE [Concomitant]

REACTIONS (5)
  - DEATH [None]
  - HEPATIC ENZYME INCREASED [None]
  - HEPATIC FAILURE [None]
  - LIVER DISORDER [None]
  - NEUROPATHY PERIPHERAL [None]
